FAERS Safety Report 5144779-2 (Version None)
Quarter: 2006Q4

REPORT INFORMATION
  Report Type: 
  Country: None (occurrence: None)
  Receive Date: 20061103
  Receipt Date: 20061103
  Transmission Date: 20070319
  Serious: Yes (Hospitalization)
  Sender: FDA-Public Use
  Company Number: None

PATIENT
  Age: 57 Year
  Sex: Male
  Weight: 86 kg

DRUGS (9)
  1. METHYLPREDNISOLONE 2000MG PFIZER [Suspect]
     Indication: MULTIPLE SCLEROSIS
     Dosage: 1000 MG 1X IV
     Route: 042
     Dates: start: 20060705, end: 20060706
  2. MOBIC [Concomitant]
  3. LIPITOR [Concomitant]
  4. CYMBALTA [Concomitant]
  5. BENICAR [Concomitant]
  6. MECLIZINE [Concomitant]
  7. VICODEN [Concomitant]
  8. SULFASALAZINE [Concomitant]
  9. ZANTAC [Concomitant]

REACTIONS (3)
  - DYSPNOEA [None]
  - GRAND MAL CONVULSION [None]
  - RASH [None]
